FAERS Safety Report 13436411 (Version 6)
Quarter: 2018Q1

REPORT INFORMATION
  Report Type: Report from Study
  Country: JP (occurrence: JP)
  Receive Date: 20170413
  Receipt Date: 20180112
  Transmission Date: 20180508
  Serious: Yes (Hospitalization, Other)
  Sender: FDA-Public Use
  Company Number: JP-PFIZER INC-2017159026

PATIENT
  Age: 8 Decade
  Sex: Female

DRUGS (13)
  1. PREDNISOLONE. [Concomitant]
     Active Substance: PREDNISOLONE
     Dosage: 2 MG, DAILY
     Route: 048
     Dates: start: 20160122, end: 20160225
  2. CARERAM [Concomitant]
     Active Substance: IGURATIMOD
     Dosage: 50 MG, UNK
     Dates: end: 20150323
  3. PREDNISOLONE. [Concomitant]
     Active Substance: PREDNISOLONE
     Dosage: 2 MG, DAILY
     Route: 048
     Dates: start: 20160719
  4. BONOTEO [Concomitant]
     Active Substance: MINODRONIC ACID
     Dosage: 50 MG, MONTHLY
     Route: 048
     Dates: start: 20150806
  5. XELJANZ [Suspect]
     Active Substance: TOFACITINIB CITRATE
     Dosage: 5 MG, 1X/DAY
     Route: 048
     Dates: start: 20150609, end: 20150903
  6. CARERAM [Concomitant]
     Active Substance: IGURATIMOD
     Dosage: 25 MG, UNK
     Dates: start: 20150324, end: 20150903
  7. METHYCOBAL [Concomitant]
     Active Substance: METHYLCOBALAMIN
     Dosage: 1.5 MG, UNK
     Route: 048
     Dates: start: 20161216
  8. PREDNISOLONE. [Concomitant]
     Active Substance: PREDNISOLONE
     Dosage: 2.5 MG, DAILY
     Route: 048
     Dates: end: 20160121
  9. PREDNISOLONE. [Concomitant]
     Active Substance: PREDNISOLONE
     Dosage: 1 MG, DAILY
     Route: 048
     Dates: start: 20160226, end: 20160718
  10. XELJANZ [Suspect]
     Active Substance: TOFACITINIB CITRATE
     Indication: RHEUMATOID ARTHRITIS
     Dosage: 5 MG, 2X/DAY
     Route: 048
     Dates: start: 20150526, end: 20150608
  11. XELJANZ [Suspect]
     Active Substance: TOFACITINIB CITRATE
     Dosage: 5 MG, 2X/DAY
     Route: 048
     Dates: start: 20150904, end: 20170112
  12. CARERAM [Concomitant]
     Active Substance: IGURATIMOD
     Dosage: 50 MG, UNK
     Dates: start: 20150904, end: 20160225
  13. CARERAM [Concomitant]
     Active Substance: IGURATIMOD
     Dosage: 25 MG, UNK
     Dates: start: 20161007

REACTIONS (1)
  - Pharyngeal cancer [Recovered/Resolved]

NARRATIVE: CASE EVENT DATE: 20170110
